FAERS Safety Report 8466476-8 (Version None)
Quarter: 2012Q2

REPORT INFORMATION
  Report Type: 
  Country: None (occurrence: None)
  Receive Date: 20120626
  Receipt Date: 20120621
  Transmission Date: 20120825
  Serious: Yes (Disabling)
  Sender: FDA-Public Use
  Company Number: PHHY2012GB053241

PATIENT
  Age: 72 Year
  Sex: Female
  Weight: 84 kg

DRUGS (16)
  1. ASPIRIN [Concomitant]
     Dates: start: 20120529
  2. BISOPROLOL FUMARATE [Concomitant]
     Dates: start: 20120529
  3. LEVOTHYROXINE [Concomitant]
     Dates: start: 20120529
  4. PLAVIX [Concomitant]
     Dates: start: 20120215, end: 20120316
  5. VALSARTAN [Concomitant]
     Dates: start: 20120402, end: 20120430
  6. BEZAFIBRATE [Concomitant]
     Dates: start: 20120529
  7. BISOPROLOL FUMARATE [Concomitant]
     Dates: start: 20120402, end: 20120430
  8. ACETAMINOPHEN AND CODEINE PHOSPHATE [Concomitant]
     Dates: start: 20120402, end: 20120430
  9. PLAVIX [Concomitant]
     Dates: start: 20120402, end: 20120502
  10. PLAVIX [Concomitant]
     Dates: start: 20120529
  11. SIMVASTATIN [Suspect]
  12. LANSOPRAZOLE [Concomitant]
     Dates: start: 20120529
  13. LEVOTHYROXINE [Concomitant]
     Dates: start: 20120402, end: 20120517
  14. ASPIRIN [Concomitant]
     Dates: start: 20120402, end: 20120430
  15. ACETAMINOPHEN AND CODEINE PHOSPHATE [Concomitant]
     Dates: start: 20120529
  16. VALSARTAN [Concomitant]
     Dates: start: 20120529

REACTIONS (3)
  - PAIN IN EXTREMITY [None]
  - MASS [None]
  - OEDEMA PERIPHERAL [None]
